FAERS Safety Report 5343780-3 (Version None)
Quarter: 2007Q2

REPORT INFORMATION
  Report Type: 
  Country: None (occurrence: None)
  Receive Date: 20070604
  Receipt Date: 20070531
  Transmission Date: 20071010
  Serious: Yes (Death)
  Sender: FDA-Public Use
  Company Number: JP-SP-2007-01307

PATIENT
  Age: 69 Year
  Sex: Male

DRUGS (9)
  1. IMMUCYST [Suspect]
     Indication: CARCINOMA IN SITU OF BLADDER
     Route: 043
     Dates: start: 20070326, end: 20070409
  2. IMMUCYST [Suspect]
     Route: 043
     Dates: start: 20070326, end: 20070409
  3. ASPIRIN [Concomitant]
     Dates: start: 20070115
  4. TELMISARTAN [Concomitant]
     Dates: start: 20070115
  5. AMLODIPINE BESYLATE [Concomitant]
     Dates: start: 20070115
  6. ATORVASTATIN CALCIUM [Concomitant]
     Dates: start: 20070115
  7. FAMOTIDINE [Concomitant]
     Dates: start: 20070115
  8. TICLOPIDINE HYDROCHLORIDE [Concomitant]
     Dates: start: 20070115
  9. INSULIN HUMAN [Concomitant]
     Dates: start: 20061019

REACTIONS (8)
  - ABDOMINAL RIGIDITY [None]
  - ALTERED STATE OF CONSCIOUSNESS [None]
  - ANOREXIA [None]
  - BRAIN HERNIATION [None]
  - FATIGUE [None]
  - LYMPHADENITIS [None]
  - MENINGITIS BACTERIAL [None]
  - PYREXIA [None]
